FAERS Safety Report 8174052-X (Version None)
Quarter: 2012Q1

REPORT INFORMATION
  Report Type: 
  Country: None (occurrence: None)
  Receive Date: 20120229
  Receipt Date: 20120214
  Transmission Date: 20120608
  Serious: Yes (Congenital Anomaly)
  Sender: FDA-Public Use
  Company Number: GB-WATSON-2012-03079

PATIENT
  Sex: Female

DRUGS (5)
  1. GABAPENTIN [Suspect]
     Indication: PRODUCT USED FOR UNKNOWN INDICATION
     Dosage: 1200 MG, TID
     Route: 064
     Dates: end: 20110314
  2. DULOXETIME HYDROCHLORIDE [Concomitant]
     Indication: PRODUCT USED FOR UNKNOWN INDICATION
     Dosage: 60 MG, DAILY
     Route: 064
     Dates: end: 20110314
  3. METOCLOPRAMIDE [Concomitant]
     Indication: PRODUCT USED FOR UNKNOWN INDICATION
     Dosage: 10 MG, TID (AS NEEDED)
     Route: 064
     Dates: start: 20110314
  4. MORPHINE SULFATE [Concomitant]
     Indication: PRODUCT USED FOR UNKNOWN INDICATION
     Dosage: 40 MG, BID,
     Route: 064
     Dates: start: 20111014
  5. TOPIRAMATE [Concomitant]
     Indication: PRODUCT USED FOR UNKNOWN INDICATION
     Dosage: 25 MG, DAILY, (AT NIGHT)
     Route: 064
     Dates: start: 20110217, end: 20110222

REACTIONS (2)
  - HAEMANGIOMA OF SKIN [None]
  - FOETAL EXPOSURE DURING PREGNANCY [None]
